FAERS Safety Report 9348036 (Version 2)
Quarter: 2013Q3

REPORT INFORMATION
  Report Type: Spontaneous
  Country: US (occurrence: US)
  Receive Date: 20130614
  Receipt Date: 20130719
  Transmission Date: 20140515
  Serious: Yes (Other)
  Sender: FDA-Public Use
  Company Number: US-009507513-1306USA003951

PATIENT
  Age: 59 Year
  Sex: Female

DRUGS (2)
  1. SAPHRIS [Suspect]
     Dosage: 5MG/ TWICE DAILY
     Route: 060
     Dates: start: 20130523, end: 201306
  2. CYMBALTA [Concomitant]

REACTIONS (5)
  - Paralysis [Recovered/Resolved]
  - Movement disorder [Recovered/Resolved]
  - Fall [Recovered/Resolved]
  - Enuresis [Recovered/Resolved]
  - Adverse event [Recovered/Resolved]
